FAERS Safety Report 6970924-X (Version None)
Quarter: 2010Q3

REPORT INFORMATION
  Report Type: 
  Country: None (occurrence: None)
  Receive Date: 20100908
  Receipt Date: 20100827
  Transmission Date: 20110219
  Serious: Yes (Hospitalization)
  Sender: FDA-Public Use
  Company Number: FI-PFIZER INC-2010108702

PATIENT
  Age: 41 Year
  Sex: Male

DRUGS (8)
  1. LYRICA [Suspect]
     Indication: EPILEPSY
     Dosage: 600 MG, 1X/DAY
     Dates: start: 20070823
  2. TEGRETOL [Concomitant]
     Indication: EPILEPSY
  3. TOPAMAX [Concomitant]
     Indication: EPILEPSY
  4. FRISIUM [Concomitant]
     Indication: EPILEPSY
  5. VALPROATE SODIUM [Concomitant]
     Indication: EPILEPSY
  6. SEPRAM [Concomitant]
  7. LORAZEPAM [Concomitant]
  8. RISPERDAL [Concomitant]

REACTIONS (1)
  - PLEURISY [None]
